FAERS Safety Report 20000764 (Version 2)
Quarter: 2021Q4

REPORT INFORMATION
  Report Type: Spontaneous
  Country: US (occurrence: US)
  Receive Date: 20211027
  Receipt Date: 20211123
  Transmission Date: 20220303
  Serious: Yes (Other)
  Sender: FDA-Public Use
  Company Number: US-AMGEN-USASP2021163264

PATIENT
  Age: 67 Year
  Sex: Female
  Weight: 78.912 kg

DRUGS (1)
  1. REPATHA [Suspect]
     Active Substance: EVOLOCUMAB
     Indication: Product used for unknown indication
     Dosage: UNK
     Route: 065
     Dates: start: 202104, end: 202109

REACTIONS (3)
  - Retinal haemorrhage [Unknown]
  - Macular degeneration [Unknown]
  - Eye pruritus [Unknown]

NARRATIVE: CASE EVENT DATE: 20210101
